FAERS Safety Report 24253712 (Version 1)
Quarter: 2024Q3

REPORT INFORMATION
  Report Type: Spontaneous
  Country: CA (occurrence: CA)
  Receive Date: 20240827
  Receipt Date: 20240827
  Transmission Date: 20241016
  Serious: Yes (Other)
  Sender: ACCORD
  Company Number: CA-MLMSERVICE-20240808-PI156406-00080-1

PATIENT
  Age: 71 Year
  Sex: Female

DRUGS (2)
  1. CARBIDOPA\LEVODOPA [Suspect]
     Active Substance: CARBIDOPA\LEVODOPA
     Indication: Parkinson^s disease
     Dosage: LEVODOPA DOSE: 750 MG/DAY
     Route: 048
  2. VITAMIN B12 [Concomitant]
     Active Substance: CYANOCOBALAMIN
     Indication: Vitamin supplementation

REACTIONS (4)
  - Demyelinating polyneuropathy [Recovered/Resolved]
  - Peripheral sensory neuropathy [Recovered/Resolved]
  - Neuropathy peripheral [Recovered/Resolved]
  - Vitamin B6 deficiency [Recovered/Resolved]

NARRATIVE: CASE EVENT DATE: 20190101
